FAERS Safety Report 17425147 (Version 1)
Quarter: 2020Q1

REPORT INFORMATION
  Report Type: Spontaneous
  Country: CN (occurrence: CN)
  Receive Date: 20200217
  Receipt Date: 20200217
  Transmission Date: 20200409
  Serious: Yes (Hospitalization)
  Sender: FDA-Public Use
  Company Number: CN-ROCHE-2549045

PATIENT
  Age: 7 Year
  Sex: Male
  Weight: 30 kg

DRUGS (6)
  1. ROCEPHIN [Suspect]
     Active Substance: CEFTRIAXONE SODIUM
     Indication: BRONCHITIS
     Route: 041
     Dates: start: 20200115, end: 20200122
  2. AZITHROMYCIN ANHYDROUS. [Suspect]
     Active Substance: AZITHROMYCIN ANHYDROUS
     Indication: BRONCHITIS
     Route: 041
     Dates: start: 20200115, end: 20200119
  3. GLUCOSE AND SODIUM CHLORIDE [Concomitant]
     Active Substance: DEXTROSE\SODIUM CHLORIDE
     Indication: BRONCHITIS
     Route: 041
     Dates: start: 20200115, end: 20200122
  4. OSELTAMIVIR [Suspect]
     Active Substance: OSELTAMIVIR
     Indication: PRODUCT USED FOR UNKNOWN INDICATION
     Route: 048
     Dates: start: 20200115, end: 20200119
  5. STERILE WATER [Concomitant]
     Active Substance: WATER
     Indication: BRONCHITIS
     Route: 041
     Dates: start: 20200115, end: 20200119
  6. GLUCOSE [Concomitant]
     Active Substance: DEXTROSE
     Indication: BRONCHITIS
     Dosage: SOLVENT FOR AZITHROMYCIN FOR INJECTION
     Route: 041
     Dates: start: 20200115, end: 20200119

REACTIONS (1)
  - White blood cell count decreased [Recovered/Resolved]

NARRATIVE: CASE EVENT DATE: 20200119
